FAERS Safety Report 5271122-0 (Version None)
Quarter: 2007Q1

REPORT INFORMATION
  Report Type: 
  Country: None (occurrence: None)
  Receive Date: 20070315
  Receipt Date: 20070308
  Transmission Date: 20070707
  Serious: Yes (Hospitalization)
  Sender: FDA-Public Use
  Company Number: 237934

PATIENT
  Age: 56 Year
  Sex: Male

DRUGS (3)
  1. ACTIVACIN (ALTEPLASE) PWDR + SOLVENT, INFUSION SOLN [Suspect]
     Indication: CEREBRAL ARTERY EMBOLISM
     Dosage: 41.1 MG, SINGLE, INTRAVENOUS
     Route: 042
     Dates: start: 20060621, end: 20060621
  2. RADICUT (EDARAVONE [Concomitant]
  3. GLYCEOL (GLYCERIN) [Concomitant]

REACTIONS (1)
  - CYSTITIS [None]
